FAERS Safety Report 5048774-3 (Version None)
Quarter: 2006Q3

REPORT INFORMATION
  Report Type: 
  Country: None (occurrence: None)
  Receive Date: 20060705
  Receipt Date: 20060612
  Transmission Date: 20061208
  Serious: Yes (Other)
  Sender: FDA-Public Use
  Company Number: DE200605003953

PATIENT
  Age: 67 Year
  Sex: Male
  Weight: 90 kg

DRUGS (3)
  1. CYMBALTA [Suspect]
     Indication: DEPRESSION
     Dosage: 60 MG, DAILY (1/D)
     Dates: start: 20060511, end: 20060511
  2. LIORESAL [Concomitant]
  3. MICTONORM (PROPIVERINE) [Concomitant]

REACTIONS (7)
  - ANOREXIA [None]
  - COGNITIVE DISORDER [None]
  - DIARRHOEA [None]
  - FLATULENCE [None]
  - HYPOKINESIA [None]
  - INSOMNIA [None]
  - VOMITING [None]
